FAERS Safety Report 24692159 (Version 2)
Quarter: 2025Q2

REPORT INFORMATION
  Report Type: Spontaneous
  Country: CN (occurrence: CN)
  Receive Date: 20241203
  Receipt Date: 20250608
  Transmission Date: 20250716
  Serious: Yes (Other)
  Sender: COHERUS
  Company Number: CN-SHANGHAI JUNSHI BIOSCIENCES CO., LTD.-CN2024012153

PATIENT

DRUGS (3)
  1. TORIPALIMAB [Suspect]
     Active Substance: TORIPALIMAB
     Indication: Triple negative breast cancer
     Route: 041
     Dates: start: 20241104, end: 20241104
  2. VINORELBINE TARTRATE [Suspect]
     Active Substance: VINORELBINE TARTRATE
     Indication: Triple negative breast cancer
     Route: 041
     Dates: start: 20241104, end: 20241104
  3. CISPLATIN [Suspect]
     Active Substance: CISPLATIN
     Indication: Triple negative breast cancer
     Dosage: 30 MG, QD
     Route: 041
     Dates: start: 20241103, end: 20241107

REACTIONS (1)
  - Myelosuppression [Recovering/Resolving]

NARRATIVE: CASE EVENT DATE: 20241108
